FAERS Safety Report 8951591 (Version 1)
Quarter: 2012Q4

REPORT INFORMATION
  Report Type: 
  Country: US (occurrence: US)
  Receive Date: 20121204
  Receipt Date: 20121204
  Transmission Date: 20130627
  Serious: Yes (Other)
  Sender: FDA-Public Use
  Company Number: US-PFIZER INC-2012303941

PATIENT
  Age: 56 Year
  Sex: Male
  Weight: 77.1 kg

DRUGS (3)
  1. LYRICA [Suspect]
     Indication: NERVE PAIN
     Dosage: 50 mg, 3x/day
     Route: 048
     Dates: start: 201210
  2. HYDROCODONE [Concomitant]
     Indication: PAIN
     Dosage: UNK
  3. VALIUM [Concomitant]
     Indication: ANXIETY
     Dosage: UNK

REACTIONS (5)
  - Homicidal ideation [Unknown]
  - Tinnitus [Unknown]
  - Insomnia [Unknown]
  - Headache [Unknown]
  - Anxiety [Unknown]
